FAERS Safety Report 17351950 (Version 1)
Quarter: 2020Q1

REPORT INFORMATION
  Report Type: Spontaneous
  Country: US (occurrence: US)
  Receive Date: 20200130
  Receipt Date: 20200130
  Transmission Date: 20200409
  Serious: Yes (Hospitalization, Other)
  Sender: FDA-Public Use
  Company Number: US-TEVA-2011A-02098

PATIENT
  Age: 89 Year
  Sex: Male

DRUGS (11)
  1. BCG THERAPY [Concomitant]
     Indication: BLADDER CANCER
     Route: 043
  2. ATORVASTATIN [Concomitant]
     Active Substance: ATORVASTATIN
     Dosage: 10 MILLIGRAM DAILY;
     Route: 065
  3. OMEPRAZOLE. [Concomitant]
     Active Substance: OMEPRAZOLE
     Dosage: 20 MILLIGRAM DAILY;
     Route: 065
  4. VITAMIN D [Concomitant]
     Active Substance: VITAMIN D NOS
     Indication: SUPPLEMENTATION THERAPY
     Route: 065
  5. ACETAMINOPHEN. [Suspect]
     Active Substance: ACETAMINOPHEN
     Indication: PROPHYLAXIS
     Dosage: 4000 MILLIGRAM DAILY; DOSE: 4000MG THE DAY BEFORE BCG INSTILLATION AND 3000MG THE DAY OF THE PROCEDU
     Route: 048
  6. SERTRALINE [Concomitant]
     Active Substance: SERTRALINE HYDROCHLORIDE
     Dosage: 100 MILLIGRAM DAILY;
     Route: 065
  7. DIPHENHYDRAMINE HYDROCHLORIDE. [Concomitant]
     Active Substance: DIPHENHYDRAMINE HYDROCHLORIDE
     Dosage: AT BED TIME
     Route: 065
  8. MOXIFLOXACIN. [Suspect]
     Active Substance: MOXIFLOXACIN
     Indication: PROPHYLAXIS
     Dosage: NUMBER OF DOSAGES: 1
     Route: 065
  9. WARFARIN SODIUM. [Suspect]
     Active Substance: WARFARIN SODIUM
     Indication: EMBOLISM VENOUS
     Dosage: 3 MG/DAY ON ALL DAYS OF A WEEK EXCEPT MONDAYS AND THURSDAYS
     Route: 048
  10. WARFARIN SODIUM. [Interacting]
     Active Substance: WARFARIN SODIUM
     Dosage: MONDAYS AND THURSDAYS, ON WHICH HE TOOK 2 MG
     Route: 048
  11. TESTOSTERONE. [Concomitant]
     Active Substance: TESTOSTERONE
     Route: 062

REACTIONS (2)
  - Drug interaction [Recovered/Resolved]
  - Anticoagulation drug level above therapeutic [Recovered/Resolved]
